FAERS Safety Report 6937794-7 (Version None)
Quarter: 2010Q3

REPORT INFORMATION
  Report Type: 
  Country: None (occurrence: None)
  Receive Date: 20100820
  Receipt Date: 20100820
  Transmission Date: 20110219
  Serious: No
  Sender: FDA-Public Use
  Company Number: None

PATIENT
  Sex: Female
  Weight: 48.5349 kg

DRUGS (1)
  1. AMLODIPINE [Suspect]
     Indication: HYPERTENSION
     Dosage: (30) (1) PER DAY
     Dates: start: 20100804

REACTIONS (4)
  - CHILLS [None]
  - DISORIENTATION [None]
  - DIZZINESS [None]
  - INSOMNIA [None]
